FAERS Safety Report 12167965 (Version 1)
Quarter: 2016Q1

REPORT INFORMATION
  Report Type: Spontaneous
  Country: US (occurrence: None)
  Receive Date: 20160309
  Receipt Date: 20160309
  Transmission Date: 20160526
  Serious: Yes (Disabling, Other)
  Sender: FDA-Public Use
  Company Number: None

PATIENT
  Age: 85 Year
  Sex: Female
  Weight: 99.79 kg

DRUGS (25)
  1. ALEVE [Concomitant]
     Active Substance: NAPROXEN SODIUM
  2. ST. JUDE CARDIAC PACE MAKER [Concomitant]
  3. VIT. D3 [Concomitant]
  4. METHIMAZOLE. [Concomitant]
     Active Substance: METHIMAZOLE
  5. METOPROLOL. [Concomitant]
     Active Substance: METOPROLOL
  6. DILTIAZEM [Concomitant]
     Active Substance: DILTIAZEM
  7. ASPIRIN. [Concomitant]
     Active Substance: ASPIRIN
  8. AMIODARONE 200 MG QD EON [Suspect]
     Active Substance: AMIODARONE
     Indication: HEART RATE IRREGULAR
     Dosage: 200 MG, 1 PILL, QD, MOUTH
     Dates: start: 20120606, end: 20150915
  9. METOPOROLOL [Concomitant]
  10. AMIODARONE 200 MG QD EON [Suspect]
     Active Substance: AMIODARONE
     Indication: CARDIAC PACEMAKER INSERTION
     Dosage: 200 MG, 1 PILL, QD, MOUTH
     Dates: start: 20120606, end: 20150915
  11. ZETIA [Concomitant]
     Active Substance: EZETIMIBE
  12. POTASSIUM [Concomitant]
     Active Substance: POTASSIUM
  13. ASPIRIN. [Concomitant]
     Active Substance: ASPIRIN
  14. ALEVE [Concomitant]
     Active Substance: NAPROXEN SODIUM
  15. FUROSEMIDE. [Concomitant]
     Active Substance: FUROSEMIDE
  16. DILTIAZEM [Concomitant]
     Active Substance: DILTIAZEM
  17. MIRALAX [Concomitant]
     Active Substance: POLYETHYLENE GLYCOL 3350
  18. VITAMIN B12 [Concomitant]
     Active Substance: CYANOCOBALAMIN
  19. ZETIA [Concomitant]
     Active Substance: EZETIMIBE
  20. PACE MAKER [Concomitant]
  21. FUROSEMIDE. [Concomitant]
     Active Substance: FUROSEMIDE
  22. PRO BIOTIC [Concomitant]
  23. POTASSIUM CHLORIDE. [Concomitant]
     Active Substance: POTASSIUM CHLORIDE
  24. METHIMAZOLE. [Concomitant]
     Active Substance: METHIMAZOLE
  25. VITAMIN B12 [Concomitant]
     Active Substance: CYANOCOBALAMIN

REACTIONS (8)
  - Pain in extremity [None]
  - Arthralgia [None]
  - Tremor [None]
  - Peripheral swelling [None]
  - Thyroid disorder [None]
  - Visual impairment [None]
  - Parkinson^s disease [None]
  - Constipation [None]

NARRATIVE: CASE EVENT DATE: 20150915
